FAERS Safety Report 11645431 (Version 6)
Quarter: 2016Q1

REPORT INFORMATION
  Report Type: Report from Study
  Country: US (occurrence: US)
  Receive Date: 20151020
  Receipt Date: 20160329
  Transmission Date: 20160525
  Serious: Yes (Hospitalization)
  Sender: FDA-Public Use
  Company Number: US-B.I. PHARMACEUTICALS,INC./RIDGEFIELD-2015-BI-57114BP

PATIENT
  Sex: Female

DRUGS (1)
  1. OFEV [Suspect]
     Active Substance: NINTEDANIB
     Indication: IDIOPATHIC PULMONARY FIBROSIS
     Dosage: 300 MG
     Route: 048
     Dates: start: 20150701

REACTIONS (7)
  - Intervertebral disc degeneration [Unknown]
  - Dyspnoea [Unknown]
  - Stress [Unknown]
  - Decreased appetite [Unknown]
  - Cough [Unknown]
  - Back pain [Unknown]
  - Abdominal discomfort [Unknown]
